FAERS Safety Report 10827131 (Version 1)
Quarter: 2015Q1

REPORT INFORMATION
  Report Type: Spontaneous
  Country: FR (occurrence: None)
  Receive Date: 20150213
  Receipt Date: 20150213
  Transmission Date: 20150721
  Serious: Yes (Other)
  Sender: FDA-Public Use
  Company Number: 2015BI013136

PATIENT
  Age: 61 Year
  Sex: Female

DRUGS (7)
  1. XATRAL [Concomitant]
     Active Substance: ALFUZOSIN
  2. TECFIDERA [Suspect]
     Active Substance: DIMETHYL FUMARATE
     Indication: MULTIPLE SCLEROSIS
     Route: 048
     Dates: start: 20141115
  3. DIAZEPAM. [Concomitant]
     Active Substance: DIAZEPAM
  4. ANAFRANIL [Concomitant]
     Active Substance: CLOMIPRAMINE HYDROCHLORIDE
  5. BACLOFENE [Concomitant]
     Active Substance: BACLOFEN
  6. ZOPICLONE [Concomitant]
     Active Substance: ZOPICLONE
  7. UVEDOSE [Concomitant]
     Active Substance: CHOLECALCIFEROL

REACTIONS (3)
  - Pancreatic enzymes increased [None]
  - Amylase increased [None]
  - Lipase increased [None]

NARRATIVE: CASE EVENT DATE: 20141115
